FAERS Safety Report 25439039 (Version 1)
Quarter: 2025Q2

REPORT INFORMATION
  Report Type: Spontaneous
  Country: US (occurrence: US)
  Receive Date: 20250616
  Receipt Date: 20250616
  Transmission Date: 20250717
  Serious: No
  Sender: CHATTEM
  Company Number: US-OPELLA-2025OHG018518

PATIENT
  Sex: Female

DRUGS (2)
  1. ALLEGRA HIVES 24HR [Suspect]
     Active Substance: FEXOFENADINE HYDROCHLORIDE
     Indication: Pruritus
     Dates: start: 2016
  2. ALLEGRA HIVES 24HR [Suspect]
     Active Substance: FEXOFENADINE HYDROCHLORIDE
     Dates: start: 202506

REACTIONS (1)
  - Rash [Unknown]

NARRATIVE: CASE EVENT DATE: 20250601
